FAERS Safety Report 19701991 (Version 2)
Quarter: 2021Q4

REPORT INFORMATION
  Report Type: Spontaneous
  Country: US (occurrence: US)
  Receive Date: 20210813
  Receipt Date: 20211001
  Transmission Date: 20220303
  Serious: No
  Sender: FDA-Public Use
  Company Number: US-MILLICENT HOLDINGS LTD.-MILL20210721

PATIENT
  Sex: Female

DRUGS (1)
  1. INTRAROSA [Suspect]
     Active Substance: PRASTERONE
     Indication: Ill-defined disorder
     Dosage: UNKNOWN
     Route: 067

REACTIONS (3)
  - Vulvovaginal injury [Unknown]
  - Device physical property issue [Unknown]
  - Pain [Unknown]
